FAERS Safety Report 8458684 (Version 5)
Quarter: 2012Q4

REPORT INFORMATION
  Report Type: 
  Country: BR (occurrence: BR)
  Receive Date: 20120314
  Receipt Date: 20120905
  Transmission Date: 20130627
  Serious: Yes (Other)
  Sender: FDA-Public Use
  Company Number: BR-PFIZER INC-2012062992

PATIENT
  Age: 48 Year
  Sex: Female
  Weight: 72.8 kg

DRUGS (5)
  1. SUTENT [Suspect]
     Indication: RENAL CELL CARCINOMA
     Dosage: 37.5 mg, 1x/day, cycle 4 for 2
     Route: 048
     Dates: start: 20110707
  2. OMEPRAZOLE [Concomitant]
     Dosage: twice daily
  3. FERROUS SULFATE [Concomitant]
     Dosage: once daily
  4. FOLIC ACID [Concomitant]
     Dosage: once daily
  5. LOSARTAN [Concomitant]
     Dosage: 50 mg, 2x/day

REACTIONS (18)
  - Abscess [Not Recovered/Not Resolved]
  - Wound haemorrhage [Not Recovered/Not Resolved]
  - Impaired healing [Unknown]
  - Hypertension [Not Recovered/Not Resolved]
  - Reflux gastritis [Unknown]
  - Limb injury [Unknown]
  - Nail disorder [Unknown]
  - Pain in extremity [Unknown]
  - Influenza [Unknown]
  - Pyrexia [Unknown]
  - Cough [Recovering/Resolving]
  - Nausea [Unknown]
  - Blister [Unknown]
  - Weight increased [Not Recovered/Not Resolved]
  - Breast mass [Not Recovered/Not Resolved]
  - Abdominal distension [Not Recovered/Not Resolved]
  - Onychomycosis [Not Recovered/Not Resolved]
  - Onycholysis [Not Recovered/Not Resolved]
